FAERS Safety Report 20137424 (Version 1)
Quarter: 2021Q4

REPORT INFORMATION
  Report Type: Spontaneous
  Country: GB (occurrence: GB)
  Receive Date: 20211201
  Receipt Date: 20211201
  Transmission Date: 20220304
  Serious: Yes (Other)
  Sender: FDA-Public Use
  Company Number: GB-MHRA-EYC 00266848

PATIENT
  Age: 52 Year
  Sex: Female
  Weight: 91 kg

DRUGS (10)
  1. CIPROFLOXACIN [Suspect]
     Active Substance: CIPROFLOXACIN
     Indication: Pneumonia
     Dosage: 500 MILLIGRAM, TWO TIMES A DAY
     Route: 048
     Dates: start: 20211111, end: 20211113
  2. ATENOLOL [Concomitant]
     Active Substance: ATENOLOL
     Indication: Ill-defined disorder
     Dosage: UNK
     Route: 065
  3. CLONIDINE HYDROCHLORIDE [Concomitant]
     Active Substance: CLONIDINE HYDROCHLORIDE
     Indication: Ill-defined disorder
     Dosage: UNK
     Route: 065
  4. DALTEPARIN [Concomitant]
     Active Substance: DALTEPARIN
     Indication: Ill-defined disorder
     Dosage: UNK
     Route: 065
  5. FOLIC ACID\IRON\MINERALS\VITAMINS [Concomitant]
     Active Substance: FOLIC ACID\IRON\MINERALS\VITAMINS
     Indication: Ill-defined disorder
     Dosage: UNK
     Route: 065
  6. POLYETHYLENE GLYCOLS [Concomitant]
     Active Substance: POLYETHYLENE GLYCOLS
     Indication: Ill-defined disorder
     Dosage: UNK
     Route: 065
  7. MELATONIN [Concomitant]
     Active Substance: MELATONIN
     Indication: Ill-defined disorder
     Dosage: UNK
     Route: 065
  8. ACETAMINOPHEN [Concomitant]
     Active Substance: ACETAMINOPHEN
     Indication: Ill-defined disorder
     Dosage: UNK
     Route: 065
  9. SODIUM PHOSPHATE, MONOBASIC, ANHYDROUS [Concomitant]
     Active Substance: SODIUM PHOSPHATE, MONOBASIC, ANHYDROUS
     Indication: Ill-defined disorder
     Dosage: UNK
     Route: 065
  10. QUETIAPINE FUMARATE [Concomitant]
     Active Substance: QUETIAPINE FUMARATE
     Indication: Ill-defined disorder
     Dosage: UNK
     Route: 065

REACTIONS (1)
  - Liver function test abnormal [Recovering/Resolving]

NARRATIVE: CASE EVENT DATE: 20211112
